FAERS Safety Report 8534083 (Version 2)
Quarter: 2012Q4

REPORT INFORMATION
  Report Type: Report from Study
  Country: AU (occurrence: AU)
  Receive Date: 20120427
  Receipt Date: 20121015
  Transmission Date: 20130627
  Serious: No
  Sender: FDA-Public Use
  Company Number: AU-ABBOTT-12P-008-0926753-03

PATIENT
  Age: 30 None
  Sex: Female
  Weight: 43 kg

DRUGS (7)
  1. HUMIRA [Suspect]
     Indication: CROHN^S DISEASE
     Dosage: 160 mg baseline/80 mg week 2
     Dates: start: 20090605, end: 20100318
  2. LOPERAMIDE HYDROCHLORIDE [Concomitant]
     Indication: CROHN^S DISEASE
     Dates: start: 20090923
  3. CALCIUM CARBONATE [Concomitant]
     Indication: OSTEOPOROSIS
     Dates: start: 20100303
  4. CALCIUM CARBONATE [Concomitant]
     Indication: OSTEOPOROSIS PROPHYLAXIS
  5. COLECALCIFEROL [Concomitant]
     Indication: OSTEOPOROSIS
     Dates: start: 20100303
  6. COLECALCIFEROL [Concomitant]
     Indication: OSTEOPOROSIS PROPHYLAXIS
  7. 6-MP [Concomitant]
     Indication: CROHN^S DISEASE

REACTIONS (1)
  - Lip squamous cell carcinoma [Recovered/Resolved]
